FAERS Safety Report 21341286 (Version 6)
Quarter: 2023Q2

REPORT INFORMATION
  Report Type: Report from Study
  Country: BR (occurrence: BR)
  Receive Date: 20220916
  Receipt Date: 20230420
  Transmission Date: 20230721
  Serious: Yes (Hospitalization, Other)
  Sender: FDA-Public Use
  Company Number: BR-JNJFOC-20220919176

PATIENT
  Age: 3 Decade
  Sex: Male
  Weight: 98 kg

DRUGS (4)
  1. INFLIXIMAB [Suspect]
     Active Substance: INFLIXIMAB
     Indication: Crohn^s disease
     Route: 041
     Dates: start: 2017, end: 2021
  2. INFLIXIMAB [Suspect]
     Active Substance: INFLIXIMAB
     Route: 041
     Dates: start: 202209
  3. INFLIXIMAB [Suspect]
     Active Substance: INFLIXIMAB
     Indication: Crohn^s disease
     Dosage: 5 VIALS?DISCONTINUED ON MAY-2021, RESUMED ON AUG-2022?TREATMENT DATE: 26-SEPT-2022
     Route: 041
     Dates: end: 20220908
  4. REMICADE [Suspect]
     Active Substance: INFLIXIMAB
     Indication: Crohn^s disease
     Dosage: INCREASED THE AMOUNT OF VIALS FROM 5 TO 10 VIALS.
     Route: 041
     Dates: start: 20220926

REACTIONS (7)
  - Tuberculosis gastrointestinal [Recovered/Resolved]
  - Abscess intestinal [Unknown]
  - Perirectal abscess [Recovering/Resolving]
  - Anal abscess [Unknown]
  - Crohn^s disease [Unknown]
  - Drug ineffective [Unknown]
  - Off label use [Unknown]

NARRATIVE: CASE EVENT DATE: 20210101
